FAERS Safety Report 7243640-7 (Version None)
Quarter: 2011Q1

REPORT INFORMATION
  Report Type: 
  Country: None (occurrence: None)
  Receive Date: 20110125
  Receipt Date: 20110119
  Transmission Date: 20110831
  Serious: Yes (Other)
  Sender: FDA-Public Use
  Company Number: PHHY2010FR77697

PATIENT
  Sex: Male
  Weight: 65 kg

DRUGS (3)
  1. LAMISIL [Suspect]
     Indication: ONYCHOMYCOSIS
     Dosage: 1 DF, DAILY
     Route: 048
     Dates: start: 20100920
  2. CRESTOR [Concomitant]
     Dosage: 3 DF, PER WEEK
     Route: 048
     Dates: start: 20100901
  3. CRESTOR [Concomitant]
     Dosage: 2 DF, PER WEEK
     Route: 048
     Dates: start: 20100921

REACTIONS (7)
  - GAMMA-GLUTAMYLTRANSFERASE INCREASED [None]
  - CELL DEATH [None]
  - ALANINE AMINOTRANSFERASE INCREASED [None]
  - CHOLESTASIS [None]
  - ASPARTATE AMINOTRANSFERASE INCREASED [None]
  - ALCOHOL POISONING [None]
  - TRANSAMINASES INCREASED [None]
